FAERS Safety Report 5464561-6 (Version None)
Quarter: 2007Q3

REPORT INFORMATION
  Report Type: 
  Country: None (occurrence: None)
  Receive Date: 20070921
  Receipt Date: 20070913
  Transmission Date: 20080115
  Serious: Yes (Hospitalization)
  Sender: FDA-Public Use
  Company Number: US-AMGEN-STX243351

PATIENT
  Sex: Female

DRUGS (3)
  1. ENBREL [Suspect]
     Indication: RHEUMATOID ARTHRITIS
     Route: 058
     Dates: start: 20010101
  2. REMICADE [Suspect]
  3. HUMIRA [Suspect]

REACTIONS (7)
  - ARTHRALGIA [None]
  - DIARRHOEA [None]
  - HEART RATE INCREASED [None]
  - HEART RATE IRREGULAR [None]
  - HYPERHIDROSIS [None]
  - KNEE ARTHROPLASTY [None]
  - VOMITING [None]
